FAERS Safety Report 9558238 (Version 2)
Quarter: 2013Q4

REPORT INFORMATION
  Report Type: Report from Study
  Country: JP (occurrence: JP)
  Receive Date: 20130926
  Receipt Date: 20131230
  Transmission Date: 20140711
  Serious: Yes (Other)
  Sender: FDA-Public Use
  Company Number: JP-VERTEX PHARMACEUTICALS INC-2013-009938

PATIENT
  Age: 64 Year
  Sex: Male

DRUGS (7)
  1. VX-950 (TELAPREVIR) [Suspect]
     Indication: CHRONIC HEPATITIS C
     Dosage: 2250 MG, QD
     Route: 048
     Dates: start: 20120905
  2. RIBAVIRIN [Suspect]
     Indication: CHRONIC HEPATITIS C
     Dosage: 800 MG, QD
     Route: 048
     Dates: start: 20120905, end: 20121016
  3. RIBAVIRIN [Suspect]
     Dosage: 600 MG, QD
     Route: 048
     Dates: start: 20121017, end: 20130226
  4. PEGINTRON [Suspect]
     Indication: CHRONIC HEPATITIS C
     Dosage: 1.2 ?G/KG, QW
     Route: 058
     Dates: start: 20120905, end: 20130220
  5. AMLODIPINE OD [Concomitant]
     Dosage: 10 MG, QD
     Route: 048
  6. AMLODIPINE OD [Concomitant]
     Dosage: 5 MG, QD
     Route: 048
  7. ZYLORIC [Concomitant]
     Dosage: 200 MG, QD
     Route: 048

REACTIONS (1)
  - Neutrophil count decreased [Recovered/Resolved]
